FAERS Safety Report 5786021-5 (Version None)
Quarter: 2008Q2

REPORT INFORMATION
  Report Type: 
  Country: None (occurrence: None)
  Receive Date: 20080619
  Receipt Date: 20080605
  Transmission Date: 20081010
  Serious: Yes (Death, Hospitalization)
  Sender: FDA-Public Use
  Company Number: 2008001314

PATIENT
  Age: 55 Year
  Sex: Male

DRUGS (6)
  1. ERLOTINIB (ERLOTINIB) (TABLET) (ERLOTINIB) [Suspect]
     Indication: NON-SMALL CELL LUNG CANCER
     Dosage: QD,ORAL
     Route: 048
     Dates: start: 20080502, end: 20080529
  2. FLUORODEOXGLUCOSE F 189 (FLUDEOXYGLUCOSE (18F) (INJECTION FOR INFUSION [Suspect]
     Indication: NON-SMALL CELL LUNG CANCER
     Dosage: INTRAVENOUS
     Route: 042
     Dates: start: 20080502, end: 20080529
  3. FLUOROTHYMIDINE F 18 (INJECTION FOR INFUSION) [Suspect]
     Indication: NON-SMALL CELL LUNG CANCER
     Dosage: 371, INTRAVENOUS
     Route: 042
     Dates: start: 20080430, end: 20080529
  4. NOVAMINUSFLON [Concomitant]
  5. BELOC-ZOK [Concomitant]
  6. NEXIUM [Concomitant]

REACTIONS (3)
  - DRUG INEFFECTIVE [None]
  - PNEUMONIA [None]
  - REFUSAL OF TREATMENT BY PATIENT [None]
